FAERS Safety Report 8571751 (Version 2)
Quarter: 2012Q4

REPORT INFORMATION
  Report Type: Report from Study
  Country: US (occurrence: US)
  Receive Date: 20120521
  Receipt Date: 20121116
  Transmission Date: 20130627
  Serious: Yes (Other)
  Sender: FDA-Public Use
  Company Number: US-PFIZER INC-2011270495

PATIENT
  Age: 60 Year
  Sex: Male
  Weight: 107 kg

DRUGS (4)
  1. LIPITOR [Suspect]
     Indication: HIGH CHOLESTEROL
     Dosage: UNK
     Dates: start: 1993, end: 2012
  2. BICALUTAMIDE [Suspect]
     Indication: PROSTATE CANCER
     Dosage: 50 mg, daily
     Dates: start: 201104, end: 2012
  3. VIAGRA [Suspect]
     Dosage: UNK
  4. SUTENT [Suspect]
     Indication: PROSTATE CANCER
     Dosage: 25 mg, daily

REACTIONS (4)
  - Prostate cancer [Recovering/Resolving]
  - Blood glucose increased [Recovering/Resolving]
  - Hypertension [Recovering/Resolving]
  - Blood triglycerides increased [Unknown]
